FAERS Safety Report 14267866 (Version 1)
Quarter: 2017Q4

REPORT INFORMATION
  Report Type: Report from Study
  Country: DE (occurrence: DE)
  Receive Date: 20171211
  Receipt Date: 20171211
  Transmission Date: 20180321
  Serious: Yes (Hospitalization, Other)
  Sender: FDA-Public Use
  Company Number: PHHY2017DE044612

PATIENT
  Age: 78 Year
  Sex: Female

DRUGS (10)
  1. ENTRESTO [Suspect]
     Active Substance: SACUBITRIL\VALSARTAN
     Dosage: 100 MG (49/51 MG), BID
     Route: 048
     Dates: start: 20161230, end: 20170120
  2. DIGIMERCK [Concomitant]
     Active Substance: DIGITOXIN
     Indication: ATRIAL FIBRILLATION
     Dosage: 0.07 MG, QD
     Route: 065
     Dates: start: 2007, end: 201702
  3. ENTRESTO [Suspect]
     Active Substance: SACUBITRIL\VALSARTAN
     Indication: CARDIAC FAILURE CHRONIC
     Dosage: 50 MG (24/26 MG) , BID
     Route: 048
     Dates: start: 20161129, end: 20161229
  4. ENTRESTO [Suspect]
     Active Substance: SACUBITRIL\VALSARTAN
     Dosage: 50 MG (24/26 MG), BID
     Route: 048
     Dates: start: 20170201, end: 20170307
  5. VALSARTAN. [Concomitant]
     Active Substance: VALSARTAN
     Indication: CARDIAC FAILURE CHRONIC
     Dosage: 80 MG, QD
     Route: 048
     Dates: start: 20170207
  6. AMLODIPIN [Concomitant]
     Active Substance: AMLODIPINE BESYLATE
     Indication: CARDIAC FAILURE CHRONIC
     Dosage: 5 MG, QD
     Route: 048
     Dates: start: 2014
  7. FUROSEMID [Concomitant]
     Active Substance: FUROSEMIDE
     Indication: CARDIAC FAILURE CHRONIC
     Dosage: 40 MG, UNK
     Route: 048
     Dates: start: 2000
  8. DIGIMERCK [Concomitant]
     Active Substance: DIGITOXIN
     Indication: CARDIAC FAILURE CHRONIC
  9. RIVAROXABAN [Concomitant]
     Active Substance: RIVAROXABAN
     Indication: CARDIAC FAILURE CHRONIC
     Dosage: 20 MG, QD
     Route: 048
     Dates: start: 2016
  10. METOPROLOL. [Concomitant]
     Active Substance: METOPROLOL
     Indication: CARDIAC FAILURE CHRONIC
     Dosage: 50 MG, QD
     Route: 048
     Dates: start: 20170126

REACTIONS (5)
  - Diarrhoea [Recovered/Resolved]
  - Ventricular extrasystoles [Recovered/Resolved]
  - Dehydration [Recovered/Resolved]
  - Hypertensive crisis [Recovered/Resolved]
  - Diarrhoea [Recovered/Resolved]

NARRATIVE: CASE EVENT DATE: 20170101
